FAERS Safety Report 9664664 (Version 1)
Quarter: 2013Q4

REPORT INFORMATION
  Report Type: Spontaneous
  Country: US (occurrence: None)
  Receive Date: 20131031
  Receipt Date: 20131031
  Transmission Date: 20140711
  Serious: Yes (Hospitalization, Other)
  Sender: FDA-Public Use
  Company Number: None

PATIENT
  Age: 45 Year
  Sex: Female
  Weight: 68.04 kg

DRUGS (1)
  1. MIRENA IUD [Suspect]

REACTIONS (5)
  - Menorrhagia [None]
  - Condition aggravated [None]
  - Haemorrhagic anaemia [None]
  - Uterine leiomyoma [None]
  - Intraductal proliferative breast lesion [None]
